FAERS Safety Report 20162163 (Version 1)
Quarter: 2021Q4

REPORT INFORMATION
  Report Type: Spontaneous
  Country: US (occurrence: None)
  Receive Date: 20211208
  Receipt Date: 20211208
  Transmission Date: 20220303
  Serious: Yes (Hospitalization)
  Sender: FDA-Public Use
  Company Number: None

PATIENT
  Sex: Female

DRUGS (11)
  1. PROLIA [Suspect]
     Active Substance: DENOSUMAB
     Indication: Osteoporosis
     Dosage: OTHER FREQUENCY : Q6M;?
     Route: 058
     Dates: start: 20180412
  2. ALBUTEROL HFA [Concomitant]
  3. AZITHROMYCIN [Concomitant]
     Active Substance: AZITHROMYCIN
  4. ELIQUIS [Concomitant]
     Active Substance: APIXABAN
  5. FLUTICASONE SPR [Concomitant]
  6. FUROSEMIDE [Concomitant]
  7. PREDNISONE [Concomitant]
  8. TRELEGY ELLIPTA [Concomitant]
  9. AMOX/K CLAV [Concomitant]
  10. SYMBICORT [Concomitant]
  11. VIRTUSSIN AC [Concomitant]

REACTIONS (1)
  - Hospitalisation [None]
